FAERS Safety Report 17483343 (Version 2)
Quarter: 2021Q1

REPORT INFORMATION
  Report Type: Report from Study
  Country: CA (occurrence: CA)
  Receive Date: 20200302
  Receipt Date: 20210108
  Transmission Date: 20210419
  Serious: Yes (Hospitalization)
  Sender: FDA-Public Use
  Company Number: CA-PUMA BIOTECHNOLOGY, LTD.-2020CA001226

PATIENT

DRUGS (1)
  1. NERLYNX [Suspect]
     Active Substance: NERATINIB
     Indication: BREAST CANCER METASTATIC
     Dosage: 240 MG, DAILY
     Route: 048
     Dates: start: 20200127, end: 20200210

REACTIONS (3)
  - Metastasis [Unknown]
  - Intentional product use issue [Unknown]
  - General physical health deterioration [Unknown]
